FAERS Safety Report 4486714-6 (Version None)
Quarter: 2004Q4

REPORT INFORMATION
  Report Type: 
  Country: None (occurrence: None)
  Receive Date: 20041021
  Receipt Date: 20041011
  Transmission Date: 20050328
  Serious: Yes (Hospitalization)
  Sender: FDA-Public Use
  Company Number: 2004238432US

PATIENT
  Age: 59 Year
  Sex: Female
  Weight: 55.8 kg

DRUGS (1)
  1. CLEOCIN PHOSPHATE [Suspect]
     Indication: PROPHYLAXIS
     Dosage: SINGLE, IV
     Route: 042
     Dates: start: 20040825, end: 20040825

REACTIONS (3)
  - BRUXISM [None]
  - TREMOR [None]
  - TRISMUS [None]
